FAERS Safety Report 7720923-5 (Version None)
Quarter: 2011Q3

REPORT INFORMATION
  Report Type: 
  Country: None (occurrence: None)
  Receive Date: 20110831
  Receipt Date: 20110816
  Transmission Date: 20111222
  Serious: Yes (Hospitalization, Other)
  Sender: FDA-Public Use
  Company Number: PHEH2011US01672

PATIENT
  Sex: Female
  Weight: 63.9 kg

DRUGS (24)
  1. NEBIVOLOL HCL [Suspect]
     Dosage: UNK UKN, UNK
  2. BENICAR [Suspect]
     Indication: HYPERTENSION
     Dosage: UNK UKN, UNK
     Dates: end: 20070101
  3. CIPROFLOXACIN [Suspect]
     Dosage: UNK UKN, UNK
  4. LIDOCAINE [Suspect]
     Dosage: UNK UKN, UNK
     Dates: end: 20100513
  5. MACROBID [Suspect]
     Dosage: UNK UKN, UNK
  6. HYDROCHLOROTHIAZIDE [Suspect]
     Dosage: UNK UKN, UNK
  7. REGLAN [Suspect]
     Dosage: UNK UKN, UNK
  8. CARDIZEM [Suspect]
     Dosage: UNK UKN, UNK
  9. ATACAND [Suspect]
     Dosage: 32 MG, QD
  10. LOSARTAN POTASSIUM [Suspect]
     Dosage: UNK UKN, UNK
     Dates: end: 19960101
  11. NORVASC [Suspect]
     Indication: HYPERTENSION
     Dosage: 2.5 MG, QD
     Dates: start: 19950101
  12. NORVASC [Suspect]
     Dosage: 5 MG, BID
     Dates: start: 20100101
  13. DEPAKOTE [Suspect]
     Indication: CONVULSION
     Dosage: UNK UKN, UNK
     Dates: start: 19960101
  14. BACTRIM [Suspect]
     Dosage: UNK UKN, UNK
  15. CLONIDINE [Concomitant]
     Indication: BLOOD PRESSURE INADEQUATELY CONTROLLED
     Dosage: 0.5 MG, TID
  16. NORVASC [Suspect]
     Dosage: 5 MG, DAILY
     Dates: start: 19970101
  17. DILANTIN [Suspect]
     Dosage: UNK UKN, UNK
     Dates: start: 19960101, end: 19960101
  18. LEVAQUIN [Suspect]
     Dosage: UNK UKN, UNK
  19. LEVOTHYROXINE SODIUM [Concomitant]
     Indication: BLOOD PRESSURE INADEQUATELY CONTROLLED
     Dosage: 0.5 MG, TID
  20. DIOVAN [Suspect]
     Dosage: UNK UKN, UNK
  21. FUROSEMIDE [Suspect]
     Dosage: 20 MG, UNK
  22. LISINOPRIL [Suspect]
     Dosage: UNK UKN, UNK
  23. XANAX [Suspect]
     Dosage: 0.5 MG, QD
     Dates: start: 19960101
  24. AVAPRO [Suspect]
     Indication: HYPERTENSION
     Dosage: UNK UKN, UNK

REACTIONS (14)
  - PALPITATIONS [None]
  - INSOMNIA [None]
  - BLOOD PRESSURE INCREASED [None]
  - CYSTITIS [None]
  - GENERALISED ERYTHEMA [None]
  - GASTRIC DISORDER [None]
  - DIZZINESS [None]
  - LOSS OF CONSCIOUSNESS [None]
  - ARTERIOGRAM CORONARY ABNORMAL [None]
  - HEADACHE [None]
  - FULL BLOOD COUNT DECREASED [None]
  - INGROWING NAIL [None]
  - WEIGHT DECREASED [None]
  - BURNING SENSATION [None]
